FAERS Safety Report 6283991-6 (Version None)
Quarter: 2009Q3

REPORT INFORMATION
  Report Type: 
  Country: None (occurrence: None)
  Receive Date: 20090725
  Receipt Date: 20080717
  Transmission Date: 20100115
  Serious: No
  Sender: FDA-Public Use
  Company Number: US-TYCO HEALTHCARE/MALLINCKRODT-T200801074

PATIENT

DRUGS (7)
  1. OXYCODONE HCL AND ACETAMINOPHEN [Suspect]
     Indication: BREAKTHROUGH PAIN
     Dosage: ONE TABLET EVERY 6 HOURS
     Route: 048
     Dates: start: 20060101
  2. OXYCODONE HCL [Concomitant]
     Dosage: ONE TABLET EVERY 12 HOURS
     Route: 048
     Dates: start: 20060101
  3. OXYCONTIN [Concomitant]
     Dates: start: 20050621
  4. PREMARIN [Concomitant]
     Indication: OESTROGEN THERAPY
     Dosage: 625 MG, UNK
  5. CEPHALEXIN [Concomitant]
     Indication: DENTAL CARE
     Dosage: 500 MG, UNK
     Dates: start: 20080513
  6. DIFLUCAN [Concomitant]
     Dosage: 150 MG, UNK
     Dates: start: 20080430
  7. LIPITOR [Concomitant]
     Indication: CHOLESTEROSIS
     Dosage: UNK, UNK
     Dates: start: 20080102

REACTIONS (3)
  - ABDOMINAL DISCOMFORT [None]
  - DRUG INEFFECTIVE [None]
  - HEADACHE [None]
